FAERS Safety Report 5054145-6 (Version None)
Quarter: 2006Q3

REPORT INFORMATION
  Report Type: 
  Country: None (occurrence: None)
  Receive Date: 20060713
  Receipt Date: 20060705
  Transmission Date: 20061208
  Serious: Yes (Death, Other)
  Sender: FDA-Public Use
  Company Number: 2005JP002283

PATIENT
  Age: 73 Year
  Sex: Male
  Weight: 74 kg

DRUGS (3)
  1. FUNGUARD(MICAFUNGIN) INJECTION [Suspect]
     Indication: RESPIRATORY MONILIASIS
     Dosage: 100 MG, UID/QD, IV DRIP
     Route: 041
     Dates: start: 20050616, end: 20050622
  2. TIENAM (IMIPENEM, CILASTATIN SODIUM) [Concomitant]
  3. TARGOCID [Concomitant]

REACTIONS (10)
  - ALANINE AMINOTRANSFERASE INCREASED [None]
  - AORTIC ANEURYSM RUPTURE [None]
  - ASPARTATE AMINOTRANSFERASE INCREASED [None]
  - BLOOD BILIRUBIN INCREASED [None]
  - CARDIAC ARREST [None]
  - CARDIAC FAILURE [None]
  - DISEASE PROGRESSION [None]
  - HEPATIC FUNCTION ABNORMAL [None]
  - HYPERBILIRUBINAEMIA [None]
  - RENAL FAILURE [None]
